FAERS Safety Report 17291004 (Version 1)
Quarter: 2020Q1

REPORT INFORMATION
  Report Type: Report from Study
  Country: CA (occurrence: CA)
  Receive Date: 20200121
  Receipt Date: 20200121
  Transmission Date: 20200409
  Serious: Yes (Other)
  Sender: FDA-Public Use
  Company Number: CA-BAYER-2019-073599

PATIENT
  Age: 76 Year
  Sex: Male

DRUGS (1)
  1. ADEMPAS [Suspect]
     Active Substance: RIOCIGUAT
     Indication: PULMONARY HYPERTENSION
     Dosage: 2.5 MG, TID
     Route: 048
     Dates: start: 20150903

REACTIONS (17)
  - Clostridium difficile infection [Recovered/Resolved]
  - Blood pressure diastolic decreased [None]
  - Blood pressure diastolic decreased [None]
  - Blood pressure diastolic decreased [Unknown]
  - Blood pressure decreased [Unknown]
  - Blood pressure systolic increased [Not Recovered/Not Resolved]
  - Blood pressure diastolic decreased [None]
  - Blood pressure diastolic decreased [None]
  - Blood pressure diastolic decreased [None]
  - Blood pressure diastolic decreased [None]
  - Blood pressure diastolic decreased [None]
  - Haemoglobin decreased [Not Recovered/Not Resolved]
  - Blood pressure diastolic decreased [Not Recovered/Not Resolved]
  - Fatigue [Not Recovered/Not Resolved]
  - Blood pressure decreased [Unknown]
  - Blood pressure diastolic decreased [Not Recovered/Not Resolved]
  - Blood pressure systolic increased [None]

NARRATIVE: CASE EVENT DATE: 20190327
